FAERS Safety Report 18172860 (Version 3)
Quarter: 2020Q4

REPORT INFORMATION
  Report Type: Report from Study
  Country: US (occurrence: US)
  Receive Date: 20200819
  Receipt Date: 20201101
  Transmission Date: 20210113
  Serious: No
  Sender: FDA-Public Use
  Company Number: NVSC2020US228838

PATIENT
  Sex: Female

DRUGS (1)
  1. ENTRESTO [Suspect]
     Active Substance: SACUBITRIL\VALSARTAN
     Indication: CARDIAC FAILURE
     Dosage: 50 MG, BID (24.26 MG)
     Route: 048

REACTIONS (7)
  - Cardiovascular disorder [Unknown]
  - Alopecia [Unknown]
  - Blood pressure decreased [Unknown]
  - Increased appetite [Unknown]
  - Palpitations [Unknown]
  - Visual impairment [Not Recovered/Not Resolved]
  - Weight increased [Unknown]
